FAERS Safety Report 21858868 (Version 3)
Quarter: 2023Q4

REPORT INFORMATION
  Report Type: Other
  Country: JP (occurrence: JP)
  Receive Date: 20230113
  Receipt Date: 20231116
  Transmission Date: 20240109
  Serious: Yes (Hospitalization)
  Sender: FDA-Public Use
  Company Number: JP-CHUGAI-2023000596

PATIENT
  Age: 83 Year
  Sex: Female
  Weight: 45 kg

DRUGS (5)
  1. TECENTRIQ [Suspect]
     Active Substance: ATEZOLIZUMAB
     Indication: Bladder cancer
     Dosage: 1200 MILLIGRAM, ONCE/3WEEKS
     Route: 041
     Dates: start: 20210518, end: 20211130
  2. ETODOLAC [Concomitant]
     Active Substance: ETODOLAC
     Dosage: UNK
     Dates: start: 20211213, end: 202112
  3. REBAMIPIDE [Concomitant]
     Active Substance: REBAMIPIDE
     Dosage: UNK
     Dates: start: 20211213, end: 202112
  4. TOCOPHERYL NICOTINATE, D-.ALPHA. [Concomitant]
     Active Substance: TOCOPHERYL NICOTINATE, D-.ALPHA.
     Dosage: UNK
     Dates: start: 20211213, end: 202112
  5. LOXOPROFEN SODIUM [Concomitant]
     Active Substance: LOXOPROFEN SODIUM
     Dosage: UNK
     Dates: start: 20211213, end: 202112

REACTIONS (4)
  - Platelet count decreased [Recovered/Resolved]
  - Immune thrombocytopenia [Recovering/Resolving]
  - Interleukin level increased [Unknown]
  - Off label use [Unknown]

NARRATIVE: CASE EVENT DATE: 20211221
